FAERS Safety Report 4390318-3 (Version None)
Quarter: 2004Q2

REPORT INFORMATION
  Report Type: 
  Country: None (occurrence: None)
  Receive Date: 20040630
  Receipt Date: 20040616
  Transmission Date: 20050107
  Serious: Yes (Other)
  Sender: FDA-Public Use
  Company Number: CAN-2004-0000155

PATIENT
  Age: 35 Year
  Sex: Female

DRUGS (2)
  1. OXYCONTIN [Suspect]
     Indication: DRUG ABUSER
  2. COCAINE [Concomitant]

REACTIONS (2)
  - CARDIAC ARREST [None]
  - DRUG DEPENDENCE [None]
